FAERS Safety Report 6232132-X (Version None)
Quarter: 2009Q2

REPORT INFORMATION
  Report Type: 
  Country: None (occurrence: None)
  Receive Date: 20090617
  Receipt Date: 20090608
  Transmission Date: 20091009
  Serious: Yes (Hospitalization, Other)
  Sender: FDA-Public Use
  Company Number: CA-ROCHE-636454

PATIENT
  Age: 54 Year
  Sex: Female

DRUGS (12)
  1. VALGANCICLOVIR HCL [Suspect]
     Route: 065
  2. MABTHERA [Suspect]
     Indication: TRANSPLANT REJECTION
     Dosage: 375 MG/M2, SINGLE
     Route: 065
  3. SULFAMETHOXAZOLE AND TRIMETHOPRIM [Suspect]
     Indication: PROPHYLAXIS
     Dosage: DOSE: TRIMETHOPRIM/SULFAMETHOXAZOLE AS 400/80 MG ONCE DAILY, DISCONTINUED 8 MONTH POST TRANSPLANT
     Route: 065
  4. SULFAMETHOXAZOLE AND TRIMETHOPRIM [Suspect]
     Dosage: AFTER DEVELOPING P.JIROVECII, DOSE 15 MG/KG TRIMETHPRIM DAILY IN 3 DIVIDED DOSES
     Route: 065
  5. SULFAMETHOXAZOLE AND TRIMETHOPRIM [Suspect]
     Dosage: AFTER P JIROVECII PROPHYLAXIS COMPLETED
     Route: 065
  6. MYCOPHENOLATE MOFETIL [Suspect]
     Indication: IMMUNOSUPPRESSION
     Dosage: 1750 MG, QD, MAINTENANCE IMMUNOSUPPRESSION
     Route: 065
  7. MYCOPHENOLATE MOFETIL [Suspect]
     Dosage: IMMUNOSUPPRESSION AT DISCHARGE
     Route: 065
  8. PREDNISONE [Suspect]
     Indication: IMMUNOSUPPRESSION
     Dosage: 5 MG, QD
     Route: 065
  9. PREDNISONE [Suspect]
     Dosage: DOSE AT DISCHARGE
     Route: 065
  10. TACROLIMUS [Suspect]
     Indication: IMMUNOSUPPRESSION
     Route: 065
  11. TACROLIMUS [Suspect]
     Dosage: AT DISCHARGE, TARGET TROUGH LEVELS 8-10 UMOL/L
     Route: 065
  12. ISONIAZID [Suspect]
     Indication: PROPHYLAXIS
     Route: 065

REACTIONS (4)
  - BLOOD CREATININE INCREASED [None]
  - HEPATIC ENZYME INCREASED [None]
  - PNEUMOCYSTIS JIROVECI PNEUMONIA [None]
  - TRANSPLANT REJECTION [None]
